FAERS Safety Report 20670083 (Version 1)
Quarter: 2022Q2

REPORT INFORMATION
  Report Type: Spontaneous
  Country: GR (occurrence: GR)
  Receive Date: 20220404
  Receipt Date: 20220404
  Transmission Date: 20220721
  Serious: Yes (Other)
  Sender: FDA-Public Use
  Company Number: GR-002147023-NVSC2021GR289556

PATIENT

DRUGS (1)
  1. RANIBIZUMAB [Suspect]
     Active Substance: RANIBIZUMAB
     Indication: Antiangiogenic therapy
     Route: 065
     Dates: start: 2015

REACTIONS (3)
  - Subretinal fluid [Unknown]
  - Fatigue [Unknown]
  - Condition aggravated [Unknown]
